FAERS Safety Report 16478996 (Version 1)
Quarter: 2019Q2

REPORT INFORMATION
  Report Type: Spontaneous
  Country: KR (occurrence: KR)
  Receive Date: 20190626
  Receipt Date: 20190626
  Transmission Date: 20190711
  Serious: Yes (Hospitalization)
  Sender: FDA-Public Use
  Company Number: KR-009507513-1905KOR003599

PATIENT
  Sex: Female

DRUGS (11)
  1. KEYTRUDA [Suspect]
     Active Substance: PEMBROLIZUMAB
     Dosage: 100 MG, QUANTITY: 2, DAYS: 1
     Dates: start: 20190513, end: 20190513
  2. TAMIPOOL [Concomitant]
     Active Substance: VITAMINS
     Dosage: QUANTITY 3, DAYS 1
     Dates: start: 20190419, end: 20190421
  3. FURTMAN [Concomitant]
     Dosage: QUANTITY 1.5, DAYS 1
     Dates: start: 20190419, end: 20190421
  4. CLINIMIX N9G15E [Concomitant]
     Dosage: QUANTITY 3, DAYS 1
     Dates: start: 20190419, end: 20190421
  5. SODIUM CHLORIDE. [Concomitant]
     Active Substance: SODIUM CHLORIDE
     Dosage: QUANTITY 1, DAYS 1
     Dates: start: 20190422
  6. KEYTRUDA [Suspect]
     Active Substance: PEMBROLIZUMAB
     Indication: CERVIX CARCINOMA RECURRENT
     Dosage: QUANTITY 2, DAYS 1
     Dates: start: 20190422, end: 20190422
  7. FURTMAN [Concomitant]
     Dosage: QUANTITY: 1, DAYS: 1
     Dates: start: 20190510, end: 20190512
  8. MORPHINE SULFATE. [Concomitant]
     Active Substance: MORPHINE SULFATE
     Dosage: QUANTITY 1, DAYS 1
     Dates: start: 20190422
  9. WINUF PERI [Concomitant]
     Dosage: QUANTITY 3, DAYS 1
     Dates: start: 20190422, end: 20190424
  10. KEYTRUDA [Suspect]
     Active Substance: PEMBROLIZUMAB
     Dosage: 100 MG, QUANTITY: 2, DAYS: 1
     Dates: start: 20190607, end: 20190607
  11. MORPHINE HYDROCHLORIDE [Concomitant]
     Active Substance: MORPHINE HYDROCHLORIDE
     Dosage: QUANTITY 3, DAYS 1
     Dates: start: 20190422, end: 20190424

REACTIONS (7)
  - Adverse event [Unknown]
  - Adverse event [Unknown]
  - Bladder catheterisation [Unknown]
  - Product use in unapproved indication [Unknown]
  - Oxygen therapy [Unknown]
  - Inhalation therapy [Unknown]
  - Inappropriate schedule of product administration [Unknown]

NARRATIVE: CASE EVENT DATE: 201904
